FAERS Safety Report 23249972 (Version 2)
Quarter: 2024Q1

REPORT INFORMATION
  Report Type: Report from Study
  Country: US (occurrence: US)
  Receive Date: 20231201
  Receipt Date: 20240105
  Transmission Date: 20240409
  Serious: Yes (Other)
  Sender: FDA-Public Use
  Company Number: US-BoehringerIngelheim-2023-BI-275842

PATIENT
  Age: 91 Year
  Sex: Female

DRUGS (1)
  1. OFEV [Suspect]
     Active Substance: NINTEDANIB
     Indication: Idiopathic pulmonary fibrosis
     Route: 048
     Dates: start: 2023

REACTIONS (3)
  - Oxygen saturation increased [Not Recovered/Not Resolved]
  - Vomiting [Not Recovered/Not Resolved]
  - General physical health deterioration [Unknown]

NARRATIVE: CASE EVENT DATE: 20240102
